FAERS Safety Report 13631810 (Version 8)
Quarter: 2018Q4

REPORT INFORMATION
  Report Type: Report from Study
  Country: US (occurrence: US)
  Receive Date: 20170608
  Receipt Date: 20181214
  Transmission Date: 20190204
  Serious: Yes (Hospitalization)
  Sender: FDA-Public Use
  Company Number: US-ACTELION-A-US2017-155097

PATIENT
  Age: 6 Year
  Sex: Male
  Weight: 20.86 kg

DRUGS (23)
  1. PREDNISOLONE. [Concomitant]
     Active Substance: PREDNISOLONE
     Dosage: 21 MG, BID, PRN
  2. VENTAVIS [Suspect]
     Active Substance: ILOPROST
     Dosage: 3 MCG, QID
     Route: 055
     Dates: start: 201610
  3. TRACLEER [Suspect]
     Active Substance: BOSENTAN
     Dosage: 31.25 MG, BID
     Route: 048
  4. LETAIRIS [Concomitant]
     Active Substance: AMBRISENTAN
  5. MONTELUKAST [Concomitant]
     Active Substance: MONTELUKAST SODIUM
  6. LASIX [Concomitant]
     Active Substance: FUROSEMIDE
     Dosage: 7 MG, BID
  7. VENTAVIS [Suspect]
     Active Substance: ILOPROST
     Dosage: 2.5 MCG 6 TO 9 X/DAY
     Route: 055
  8. TRACLEER [Suspect]
     Active Substance: BOSENTAN
     Dosage: 31.25 MG, BID VIA G TUBE
     Route: 048
  9. FLUTICASONE. [Concomitant]
     Active Substance: FLUTICASONE
  10. ALBUTEROL. [Concomitant]
     Active Substance: ALBUTEROL
  11. VENTAVIS [Suspect]
     Active Substance: ILOPROST
     Dosage: 5.0 MCG, 6 TO 9 TIMES PER DAY
     Route: 055
  12. VENTAVIS [Suspect]
     Active Substance: ILOPROST
     Indication: PULMONARY HYPERTENSION
     Dosage: 4.5 MCG, QID
     Route: 055
  13. REVATIO [Concomitant]
     Active Substance: SILDENAFIL CITRATE
     Dosage: 20 MG, TID
  14. SENNA [Concomitant]
     Active Substance: SENNA LEAF\SENNOSIDES\SENNOSIDES A AND B
  15. COLACE [Concomitant]
     Active Substance: DOCUSATE SODIUM
  16. LEVOTHYROXINE. [Concomitant]
     Active Substance: LEVOTHYROXINE
     Dosage: 62.5 MG, QD
  17. BECLOMETHASONE [Concomitant]
     Active Substance: BECLOMETHASONE
  18. OMEPRAZOLE. [Concomitant]
     Active Substance: OMEPRAZOLE
  19. VENTAVIS [Suspect]
     Active Substance: ILOPROST
     Dosage: UNK
     Route: 055
  20. TRACLEER [Suspect]
     Active Substance: BOSENTAN
     Indication: PULMONARY HYPERTENSION
     Dosage: UNK
     Route: 048
     Dates: end: 201807
  21. TRACLEER [Suspect]
     Active Substance: BOSENTAN
     Dosage: 31.25 MG, QD
     Route: 048
     Dates: start: 201701
  22. TRACLEER [Suspect]
     Active Substance: BOSENTAN
     Dosage: 32 MG, BID
     Route: 048
     Dates: start: 2015
  23. LACTOBACILLUS [Concomitant]
     Active Substance: LACTOBACILLUS ACIDOPHILUS

REACTIONS (6)
  - Viral infection [Unknown]
  - Malaise [Unknown]
  - Pneumonia bacterial [Unknown]
  - Nasopharyngitis [Unknown]
  - Rhinovirus infection [Unknown]
  - Dyspnoea [Unknown]
